FAERS Safety Report 21016122 (Version 1)
Quarter: 2022Q2

REPORT INFORMATION
  Report Type: Spontaneous
  Country: US (occurrence: US)
  Receive Date: 20220628
  Receipt Date: 20220628
  Transmission Date: 20220720
  Serious: Yes (Hospitalization)
  Sender: FDA-Public Use
  Company Number: US-STRIDES ARCOLAB LIMITED-2021SP006160

PATIENT
  Age: 59 Year
  Sex: Male

DRUGS (2)
  1. MELOXICAM [Suspect]
     Active Substance: MELOXICAM
     Indication: Product used for unknown indication
     Dosage: 7.5 MILLIGRAM
     Route: 065
  2. MELOXICAM [Suspect]
     Active Substance: MELOXICAM
     Dosage: 15 MILLIGRAM (DOUBLED)
     Route: 065

REACTIONS (1)
  - Pancreatitis acute [Recovered/Resolved]
